FAERS Safety Report 13724643 (Version 2)
Quarter: 2017Q3

REPORT INFORMATION
  Report Type: Spontaneous
  Country: AE (occurrence: AE)
  Receive Date: 20170706
  Receipt Date: 20170712
  Transmission Date: 20171127
  Serious: Yes (Hospitalization)
  Sender: FDA-Public Use
  Company Number: AE-LPDUSPRD-20170395

PATIENT
  Age: 45 Year
  Sex: Female
  Weight: 79 kg

DRUGS (1)
  1. FERINJECT [Suspect]
     Active Substance: FERRIC CARBOXYMALTOSE
     Dosage: 1000MG IN 250 ML
     Route: 041
     Dates: start: 20170305

REACTIONS (2)
  - Hypersensitivity [Unknown]
  - Arthritis [Unknown]

NARRATIVE: CASE EVENT DATE: 20170305
